FAERS Safety Report 6198522-9 (Version None)
Quarter: 2009Q2

REPORT INFORMATION
  Report Type: 
  Country: None (occurrence: None)
  Receive Date: 20090521
  Receipt Date: 20090514
  Transmission Date: 20091009
  Serious: Yes (Other)
  Sender: FDA-Public Use
  Company Number: PHEH2008US09448

PATIENT
  Sex: Female

DRUGS (13)
  1. ZOMETA [Suspect]
     Dosage: UNK
     Dates: start: 20030801
  2. AREDIA [Suspect]
     Dosage: MONTHLY
     Dates: start: 20031201
  3. CHEMOTHERAPEUTICS NOS [Concomitant]
  4. HERCEPTIN [Concomitant]
     Dosage: UNK
     Dates: start: 20030801
  5. STEROIDS NOS [Concomitant]
  6. PREVACID [Concomitant]
  7. OXYCONTIN [Concomitant]
  8. VICODIN [Concomitant]
  9. TYLENOL [Concomitant]
  10. TAXOTERE [Concomitant]
     Dosage: UNK
     Dates: start: 20030801
  11. RADIATION THERAPY [Concomitant]
  12. ZOLADEX [Concomitant]
  13. ARIMIDEX [Concomitant]

REACTIONS (11)
  - ANXIETY [None]
  - EMOTIONAL DISTRESS [None]
  - INFECTION [None]
  - INJURY [None]
  - OSTEONECROSIS [None]
  - PAIN [None]
  - PAIN IN EXTREMITY [None]
  - PHYSICAL DISABILITY [None]
  - PLEURAL EFFUSION [None]
  - SCAR [None]
  - TOOTHACHE [None]
